FAERS Safety Report 21258360 (Version 1)
Quarter: 2022Q3

REPORT INFORMATION
  Report Type: Spontaneous
  Country: US (occurrence: US)
  Receive Date: 20220826
  Receipt Date: 20220826
  Transmission Date: 20221027
  Serious: No
  Sender: FDA-Public Use
  Company Number: US-TARO PHARMACEUTICALS USA INC.-2021TAR01021

PATIENT

DRUGS (1)
  1. TERBINAFINE HYDROCHLORIDE [Suspect]
     Active Substance: TERBINAFINE HYDROCHLORIDE
     Indication: Tinea cruris
     Dosage: USED FOR 2 WEEKS ACCORDING TO THE PRODUCT LABELLING
     Route: 061
     Dates: start: 202108

REACTIONS (3)
  - Application site pain [Not Recovered/Not Resolved]
  - Application site pruritus [Not Recovered/Not Resolved]
  - Drug ineffective [Unknown]

NARRATIVE: CASE EVENT DATE: 20210801
